FAERS Safety Report 6177117-7 (Version None)
Quarter: 2009Q2

REPORT INFORMATION
  Report Type: 
  Country: None (occurrence: None)
  Receive Date: 20090430
  Receipt Date: 20090430
  Transmission Date: 20091009
  Serious: No
  Sender: FDA-Public Use
  Company Number: None

PATIENT
  Age: 25 Year
  Sex: Female
  Weight: 51.2565 kg

DRUGS (1)
  1. MAXALT [Suspect]
     Indication: MIGRAINE
     Dosage: 1-10 MG TABLET ONCE PO, ONE USED ONCE
     Route: 048

REACTIONS (2)
  - CHEST DISCOMFORT [None]
  - PALPITATIONS [None]
